FAERS Safety Report 13080209 (Version 1)
Quarter: 2017Q1

REPORT INFORMATION
  Report Type: Report from Study
  Country: CA (occurrence: CA)
  Receive Date: 20170103
  Receipt Date: 20170103
  Transmission Date: 20170428
  Serious: Yes (Hospitalization)
  Sender: FDA-Public Use
  Company Number: CA-ROCHE-1262789

PATIENT
  Age: 64 Year
  Sex: Female
  Weight: 66 kg

DRUGS (15)
  1. CYCLOPHOSPHAMIDE. [Suspect]
     Active Substance: CYCLOPHOSPHAMIDE
     Indication: HER-2 POSITIVE BREAST CANCER
     Dosage: LAST DOSE ASDMINISTERED PRIOR TO SAE 20/JUN/2013?500-600 MILLIGRAMS PER SQUARE METER (MG/M^2) (AS PE
     Route: 042
     Dates: start: 20130509
  2. METFORMIN [Concomitant]
     Active Substance: METFORMIN HYDROCHLORIDE
     Route: 048
     Dates: start: 2007
  3. PLACEBO [Suspect]
     Active Substance: UNSPECIFIED INGREDIENT
     Indication: HER-2 POSITIVE BREAST CANCER
     Dosage: DATE OF LAST DOSE PRIOR TO SAE: 01/AUG/2013
     Route: 042
     Dates: start: 20130711
  4. 5-FLUOROURACIL [Suspect]
     Active Substance: FLUOROURACIL
     Indication: HER-2 POSITIVE BREAST CANCER
     Dosage: LAST DOSE ADMINISTERED PRIOR TO SAE 20/JUN/2013?500-600 MILLIGRAMS PER SQUARE METER (MG/M^2) (AS PER
     Route: 042
     Dates: start: 20130509
  5. DEXAMETHASONE. [Concomitant]
     Active Substance: DEXAMETHASONE
     Dosage: FOR 6 DOSES (2 DOSES PRIOR TO CHEMOTHERAPY, 4 DOSES POST CHEMOTHERAPY).
     Route: 048
     Dates: start: 20130731, end: 20130802
  6. DOXORUBICIN [Concomitant]
     Active Substance: DOXORUBICIN
  7. ACETYLSALICYLIC ACID [Suspect]
     Active Substance: ASPIRIN
     Indication: PRODUCT USED FOR UNKNOWN INDICATION
     Route: 048
     Dates: start: 2007
  8. RAMIPRIL. [Concomitant]
     Active Substance: RAMIPRIL
     Route: 048
  9. CRESTOR [Concomitant]
     Active Substance: ROSUVASTATIN CALCIUM
     Route: 048
  10. EPIRUBICIN [Suspect]
     Active Substance: EPIRUBICIN
     Indication: HER-2 POSITIVE BREAST CANCER
     Dosage: LAST DOSE ASDMINISTERED PRIOR TO SAE 20/JUN/2013?90-120 MG/M^2 (AS PER PROTOCOL)
     Route: 042
     Dates: start: 20130509
  11. DOCETAXEL. [Suspect]
     Active Substance: DOCETAXEL
     Indication: HER-2 POSITIVE BREAST CANCER
     Dosage: 75 MG/M^2  (AS PER PROTOCOL)?LAST DOSE ADMINISTERED PRIOR TO SAE: 162 MG IN 250 ML NORMAL SOLUTION:
     Route: 042
     Dates: start: 20130711
  12. TRASTUZUMAB [Suspect]
     Active Substance: TRASTUZUMAB
     Dosage: DATE OF LAST DOSE PRIOR TO SAE: 01/AUG/2013?MAINTENACE DOSE OF 6MG/KG
     Route: 042
  13. GLICLAZIDE [Concomitant]
     Active Substance: GLICLAZIDE
     Route: 048
     Dates: start: 2007
  14. TRASTUZUMAB [Suspect]
     Active Substance: TRASTUZUMAB
     Indication: HER-2 POSITIVE BREAST CANCER
     Dosage: (393 MG IV IN 250 ML NS) (AS PER PROTOCOL).?TRASTUZUMAB AT A LOADING DOSE
     Route: 042
     Dates: start: 20130711
  15. NEUPOGEN [Concomitant]
     Active Substance: FILGRASTIM
     Dosage: FOR 7 DAYS STARTING 1 DAY POST CHEMOTHERAPY
     Route: 058
     Dates: start: 20130802, end: 20130808

REACTIONS (1)
  - Duodenal ulcer haemorrhage [Recovered/Resolved]

NARRATIVE: CASE EVENT DATE: 20130814
